FAERS Safety Report 5331352-6 (Version None)
Quarter: 2007Q2

REPORT INFORMATION
  Report Type: 
  Country: None (occurrence: None)
  Receive Date: 20070522
  Receipt Date: 20070509
  Transmission Date: 20071010
  Serious: Yes (Hospitalization)
  Sender: FDA-Public Use
  Company Number: US-ELI_LILLY_AND_COMPANY-US200705002446

PATIENT
  Age: 74 Year
  Sex: Female

DRUGS (1)
  1. FORTEO [Suspect]
     Indication: OSTEOPOROSIS
     Dosage: UNK D/F, UNK
     Dates: start: 20070401

REACTIONS (7)
  - ASTHENIA [None]
  - BLOOD POTASSIUM DECREASED [None]
  - DEHYDRATION [None]
  - HOT FLUSH [None]
  - KIDNEY INFECTION [None]
  - RETCHING [None]
  - URINARY INCONTINENCE [None]
